FAERS Safety Report 9665097 (Version 1)
Quarter: 2013Q4

REPORT INFORMATION
  Report Type: Spontaneous
  Country: US (occurrence: US)
  Receive Date: 20131101
  Receipt Date: 20131101
  Transmission Date: 20140711
  Serious: Yes (Other)
  Sender: FDA-Public Use
  Company Number: US-BAXTER-2013BAX042447

PATIENT
  Age: 18 Year
  Sex: Female

DRUGS (2)
  1. DIANEAL PD2 [Suspect]
     Indication: RENAL FAILURE CHRONIC
     Route: 033
     Dates: start: 20121115, end: 201308
  2. DIANEAL PD2 [Suspect]
     Route: 033
     Dates: start: 201308

REACTIONS (1)
  - Umbilical hernia [Recovered/Resolved]
